FAERS Safety Report 6101966-4 (Version None)
Quarter: 2009Q1

REPORT INFORMATION
  Report Type: 
  Country: None (occurrence: None)
  Receive Date: 20090304
  Receipt Date: 20090220
  Transmission Date: 20090719
  Serious: Yes (Death)
  Sender: FDA-Public Use
  Company Number: CO-PFIZER INC-2009174482

PATIENT

DRUGS (2)
  1. SULPERAZON [Suspect]
     Indication: PSEUDOMONAS INFECTION
     Dosage: 3 G, 4X/DAY
     Route: 042
     Dates: start: 20080101, end: 20080101
  2. VITAMIN K [Concomitant]

REACTIONS (1)
  - COAGULOPATHY [None]
